FAERS Safety Report 4636663-5 (Version None)
Quarter: 2005Q2

REPORT INFORMATION
  Report Type: 
  Country: None (occurrence: None)
  Receive Date: 20050328
  Receipt Date: 20041207
  Transmission Date: 20051028
  Serious: No
  Sender: FDA-Public Use
  Company Number: USA041285541

PATIENT
  Age: 7 Year
  Sex: Male
  Weight: 20 kg

DRUGS (3)
  1. STRATTERA [Suspect]
     Dosage: 20 MG IN THE EVENING
     Dates: start: 20041123
  2. CLARINEX [Concomitant]
  3. CONCERTA [Concomitant]

REACTIONS (4)
  - ABNORMAL BEHAVIOUR [None]
  - DRUG INEFFECTIVE [None]
  - FATIGUE [None]
  - TIC [None]
